FAERS Safety Report 25632833 (Version 1)
Quarter: 2025Q3

REPORT INFORMATION
  Report Type: Spontaneous
  Country: US (occurrence: US)
  Receive Date: 20250801
  Receipt Date: 20250801
  Transmission Date: 20251021
  Serious: No
  Sender: GRIFOLS
  Company Number: US-IGSA-BIG0033486

PATIENT
  Age: 89 Year
  Sex: Female

DRUGS (2)
  1. GAMUNEX-C [Suspect]
     Active Substance: HUMAN IMMUNOGLOBULIN G
     Indication: Myasthenia gravis
     Dosage: 140 GRAM, Q.4WK.
     Route: 042
     Dates: start: 20210527
  2. GAMUNEX-C [Suspect]
     Active Substance: HUMAN IMMUNOGLOBULIN G
     Indication: Off label use

REACTIONS (4)
  - Infusion site discharge [Unknown]
  - Device occlusion [Unknown]
  - Infusion site swelling [Unknown]
  - Vein rupture [Unknown]

NARRATIVE: CASE EVENT DATE: 20250228
